FAERS Safety Report 9247465 (Version 1)
Quarter: 2013Q2

REPORT INFORMATION
  Report Type: Spontaneous
  Country: GR (occurrence: GR)
  Receive Date: 20130423
  Receipt Date: 20130423
  Transmission Date: 20140414
  Serious: Yes (Other)
  Sender: FDA-Public Use
  Company Number: GR-BAYER-2013-048622

PATIENT
  Age: 27 Year
  Sex: Female

DRUGS (4)
  1. YASMIN [Suspect]
     Indication: POLYCYSTIC OVARIES
     Dosage: UNK
     Route: 048
     Dates: start: 2009, end: 2012
  2. YASMIN [Suspect]
     Indication: POLYCYSTIC OVARIES
     Dosage: UNK
     Route: 048
     Dates: start: 2012
  3. T4 [Concomitant]
     Indication: HYPOTHYROIDISM
     Dosage: UNK
  4. T4 [Concomitant]
     Indication: HYPOTHYROIDISM

REACTIONS (2)
  - Vulvovaginal candidiasis [None]
  - Off label use [None]
